FAERS Safety Report 11797114 (Version 1)
Quarter: 2015Q4

REPORT INFORMATION
  Report Type: Report from Study
  Country: AR (occurrence: AR)
  Receive Date: 20151203
  Receipt Date: 20151203
  Transmission Date: 20160305
  Serious: Yes (Other)
  Sender: FDA-Public Use
  Company Number: AR-BIOMARINAP-AR-2015-108260

PATIENT
  Age: 16 Month
  Sex: Female
  Weight: 11.5 kg

DRUGS (1)
  1. ALDURAZYME [Suspect]
     Active Substance: LARONIDASE
     Indication: MUCOPOLYSACCHARIDOSIS I
     Dosage: 130.43 IU/KG, QW
     Route: 041
     Dates: start: 20151104

REACTIONS (1)
  - Vein rupture [Recovered/Resolved]

NARRATIVE: CASE EVENT DATE: 20151111
